FAERS Safety Report 12797058 (Version 2)
Quarter: 2016Q4

REPORT INFORMATION
  Report Type: Spontaneous
  Country: US (occurrence: US)
  Receive Date: 20160930
  Receipt Date: 20161021
  Transmission Date: 20170207
  Serious: No
  Sender: FDA-Public Use
  Company Number: US-PFIZER INC-2016456861

PATIENT
  Age: 62 Year
  Sex: Male

DRUGS (9)
  1. TENORMIN [Concomitant]
     Active Substance: ATENOLOL
     Dosage: 1 DF, DAILY
     Route: 048
  2. PERCOCET [Concomitant]
     Active Substance: ACETAMINOPHEN\OXYCODONE HYDROCHLORIDE
     Dosage: 1 DF, AS NEEDED (1 TABLET EVERY 4 (FOUR) HOURS AS NEEDED)(OXYCODONE:10 MG- PARACETAMOL: 325 MG)
     Route: 048
  3. ADVAIR HFA [Concomitant]
     Active Substance: FLUTICASONE PROPIONATE\SALMETEROL XINAFOATE
     Dosage: 2 DF, 2X/DAY(FLUTICASONE PROPIONATE: 115 MCG/ACT- SALMETEROL XINAFOATE: 21 MCG/ACT)
     Route: 055
  4. SUTENT [Suspect]
     Active Substance: SUNITINIB MALATE
     Indication: RENAL CELL CARCINOMA
     Dosage: 50 MG, CYCLIC(DAILY 2 WEEKS ON 1 WEEK OFF)
     Route: 048
  5. PHENERGAN [Concomitant]
     Active Substance: PROMETHAZINE HYDROCHLORIDE
     Dosage: 25 MG, AS NEEDED (EVERY 4 (FOUR) HOURS AS NEEDED)
     Route: 048
  6. XANAX [Concomitant]
     Active Substance: ALPRAZOLAM
     Indication: ANXIETY
     Dosage: 1 DF, AS NEEDED (TAKE ONE TABLET BY MOUTH THREE TIMES DAILY AS NEEDED)
     Route: 048
  7. HYDROCODONE BITARTRATE AND ACETAMINOPHEN [Concomitant]
     Active Substance: ACETAMINOPHEN\HYDROCODONE BITARTRATE
     Indication: PAIN
     Dosage: 1 DF, AS NEEDED(TAKE 1 TABLET BY MOUTH EVERY 4 (FOUR) HOURS AS NEEDED )
     Route: 048
  8. PRILOSEC [Concomitant]
     Active Substance: OMEPRAZOLE MAGNESIUM
     Dosage: 20 MG, DAILY
     Route: 048
  9. SYNTHROID [Concomitant]
     Active Substance: LEVOTHYROXINE SODIUM
     Dosage: 1 DF, DAILY (1 TABLET DAILY)
     Route: 048

REACTIONS (2)
  - Malaise [Unknown]
  - Vomiting [Unknown]
